FAERS Safety Report 19559442 (Version 1)
Quarter: 2021Q3

REPORT INFORMATION
  Report Type: Spontaneous
  Country: US (occurrence: US)
  Receive Date: 20210716
  Receipt Date: 20210716
  Transmission Date: 20211014
  Serious: No
  Sender: FDA-Public Use
  Company Number: US-TEVA-2021-US-1931436

PATIENT
  Sex: Female

DRUGS (1)
  1. WARFARIN SODIUM TEVA [Suspect]
     Active Substance: WARFARIN SODIUM
     Route: 065

REACTIONS (4)
  - Nightmare [Not Recovered/Not Resolved]
  - Insomnia [Not Recovered/Not Resolved]
  - Asthenia [Not Recovered/Not Resolved]
  - Blood test abnormal [Unknown]
